FAERS Safety Report 6480938-4 (Version None)
Quarter: 2009Q4

REPORT INFORMATION
  Report Type: 
  Country: None (occurrence: None)
  Receive Date: 20091208
  Receipt Date: 20091130
  Transmission Date: 20100525
  Serious: Yes (Other)
  Sender: FDA-Public Use
  Company Number: PHHY2009BR53181

PATIENT
  Sex: Female

DRUGS (4)
  1. DIOVAN [Suspect]
     Dosage: 1 TABLET DAILY
     Route: 048
     Dates: start: 20090801
  2. DIOVAN [Suspect]
     Dosage: 2 TABLET/DAY
  3. METFORMIN HCL [Concomitant]
     Indication: DIABETES MELLITUS
     Dosage: TWO TABLETS DAILY,
     Route: 048
  4. GLIBENCLAMIDE [Concomitant]
     Indication: DIABETES MELLITUS
     Dosage: THREE TABLETS DAILY
     Route: 048

REACTIONS (7)
  - ABDOMINAL PAIN UPPER [None]
  - BACK PAIN [None]
  - BLOOD PRESSURE INCREASED [None]
  - GASTRITIS [None]
  - HEADACHE [None]
  - NAUSEA [None]
  - VOMITING [None]
